FAERS Safety Report 7325609-7 (Version None)
Quarter: 2011Q1

REPORT INFORMATION
  Report Type: 
  Country: None (occurrence: None)
  Receive Date: 20110302
  Receipt Date: 20110221
  Transmission Date: 20110831
  Serious: Yes (Other)
  Sender: FDA-Public Use
  Company Number: US-ELI_LILLY_AND_COMPANY-US201102005659

PATIENT
  Sex: Female
  Weight: 99.32 kg

DRUGS (4)
  1. BYETTA [Suspect]
     Indication: TYPE 2 DIABETES MELLITUS
     Dosage: 5 UG, DAILY (1/D)
     Route: 058
     Dates: start: 20100501, end: 20101201
  2. SYNTHROID [Concomitant]
  3. BYETTA [Suspect]
     Dosage: 10 UG, DAILY (1/D)
     Route: 058
     Dates: end: 20110218
  4. GLUCOPHAGE [Concomitant]

REACTIONS (9)
  - INJECTION SITE IRRITATION [None]
  - WEIGHT DECREASED [None]
  - IMMEDIATE POST-INJECTION REACTION [None]
  - WEIGHT INCREASED [None]
  - PRURITUS [None]
  - INJECTION SITE ERYTHEMA [None]
  - HEAD INJURY [None]
  - LOSS OF CONSCIOUSNESS [None]
  - RASH [None]
